FAERS Safety Report 20191345 (Version 2)
Quarter: 2022Q1

REPORT INFORMATION
  Report Type: Spontaneous
  Country: None (occurrence: US)
  Receive Date: 20211216
  Receipt Date: 20220119
  Transmission Date: 20220423
  Serious: No
  Sender: FDA-Public Use
  Company Number: US-Innogenix, LLC-2123088

PATIENT

DRUGS (1)
  1. LABETALOL HYDROCHLORIDE [Suspect]
     Active Substance: LABETALOL HYDROCHLORIDE
     Indication: Blood pressure abnormal
     Route: 065

REACTIONS (4)
  - Blood pressure increased [Unknown]
  - Incorrect dosage administered [Unknown]
  - Tension headache [Unknown]
  - Drug ineffective [Unknown]
